FAERS Safety Report 20317606 (Version 1)
Quarter: 2022Q1

REPORT INFORMATION
  Report Type: Spontaneous
  Country: IR (occurrence: IR)
  Receive Date: 20220110
  Receipt Date: 20220110
  Transmission Date: 20220423
  Serious: Yes (Death, Hospitalization)
  Sender: FDA-Public Use
  Company Number: IR-MYLANLABS-2022M1002002

PATIENT
  Age: 9 Year
  Sex: Female

DRUGS (7)
  1. ETOPOSIDE [Suspect]
     Active Substance: ETOPOSIDE
     Indication: Acute lymphocytic leukaemia recurrent
     Dosage: UNK
     Route: 065
     Dates: start: 202011
  2. CYTARABINE [Suspect]
     Active Substance: CYTARABINE
     Indication: Acute lymphocytic leukaemia recurrent
     Dosage: 100 MILLIGRAM/SQ. METER
     Route: 065
     Dates: start: 202011
  3. DEXAMETHASONE [Suspect]
     Active Substance: DEXAMETHASONE
     Indication: Acute lymphocytic leukaemia recurrent
     Dosage: 2 MILLIGRAM, Q8H
     Route: 065
     Dates: start: 202011
  4. VINCRISTINE [Suspect]
     Active Substance: VINCRISTINE
     Indication: Acute lymphocytic leukaemia recurrent
     Dosage: WEEKLY
     Route: 065
     Dates: start: 202011
  5. AMPHOTERICIN B [Suspect]
     Active Substance: AMPHOTERICIN B
     Indication: Prophylaxis
     Dosage: 2.5 MILLIGRAM/KILOGRAM, EVERY OTHER DAY
     Route: 065
     Dates: start: 202011
  6. AMPHOTERICIN B [Suspect]
     Active Substance: AMPHOTERICIN B
     Dosage: 5 MILLIGRAM/KILOGRAM, QD
     Route: 065
  7. Sulfamethoxazole sodium;Trimethoprim [Concomitant]
     Indication: Prophylaxis
     Dosage: 200/40 MG TWICE/DAY THREE TIMES/WEEK
     Route: 065
     Dates: start: 202011

REACTIONS (4)
  - Mucormycosis [Fatal]
  - Neutropenic colitis [Fatal]
  - Disseminated intravascular coagulation [Fatal]
  - Multiple organ dysfunction syndrome [Fatal]

NARRATIVE: CASE EVENT DATE: 20200101
